FAERS Safety Report 9947848 (Version 1)
Quarter: 2014Q1

REPORT INFORMATION
  Report Type: Report from Study
  Country: US (occurrence: US)
  Receive Date: 20140303
  Receipt Date: 20140303
  Transmission Date: 20141002
  Serious: No
  Sender: FDA-Public Use
  Company Number: US-ABBVIE-13P-163-1058946-00

PATIENT
  Age: 36 Year
  Sex: Female

DRUGS (4)
  1. HUMIRA [Suspect]
     Indication: RHEUMATOID ARTHRITIS
     Dates: start: 201301
  2. LAMOTRIGINE [Concomitant]
     Indication: CONVULSION
  3. PREDNISONE [Concomitant]
     Indication: PAIN
     Dosage: 5-10 MG
  4. CORTISONE [Concomitant]

REACTIONS (1)
  - Arthralgia [Not Recovered/Not Resolved]
